FAERS Safety Report 16047025 (Version 1)
Quarter: 2019Q1

REPORT INFORMATION
  Report Type: Spontaneous
  Country: SE (occurrence: SE)
  Receive Date: 20190307
  Receipt Date: 20190307
  Transmission Date: 20190418
  Serious: Yes (Hospitalization)
  Sender: FDA-Public Use
  Company Number: SE-TEVA-2019-SE-1019281

PATIENT
  Sex: Male

DRUGS (3)
  1. TRAMADOL. [Suspect]
     Active Substance: TRAMADOL
     Dosage: 15 TRAMADOL UNKNOWN STRENGTH
     Route: 048
     Dates: start: 20160815, end: 20160815
  2. COCILLANA-ETYFIN [Suspect]
     Active Substance: ETHYLMORPHINE HYDROCHLORIDE\HERBALS
     Dosage: 200ML
     Route: 048
     Dates: start: 20180815, end: 20180815
  3. STESOLID [Suspect]
     Active Substance: DIAZEPAM
     Dosage: 300MG
     Route: 048
     Dates: start: 20160815, end: 20160815

REACTIONS (2)
  - Intentional self-injury [Unknown]
  - Intentional overdose [Unknown]

NARRATIVE: CASE EVENT DATE: 20160815
